FAERS Safety Report 4865406-5 (Version None)
Quarter: 2005Q4

REPORT INFORMATION
  Report Type: 
  Country: None (occurrence: None)
  Receive Date: 20051219
  Receipt Date: 20051214
  Transmission Date: 20060501
  Serious: Yes (Disabling)
  Sender: FDA-Public Use
  Company Number: LTI2005A00277

PATIENT
  Age: 81 Year
  Sex: Male

DRUGS (5)
  1. ENANTONE LP                (LEUPROLIDE ACETATE) [Suspect]
     Indication: PROSTATE CANCER
     Dosage: 3.75 MG (3.75 MG 1 IN 28 D)
     Route: 058
     Dates: start: 19921102, end: 19980825
  2. ENANTONE LP                (LEUPROLIDE ACETATE) [Suspect]
     Indication: PROSTATE CANCER
     Dosage: 3.75 MG (3.75 MG 1 IN 28 D)
     Route: 058
     Dates: start: 20020708, end: 20030101
  3. GLUCINAN      (METFORMIN CHLOROPHENOXYACETATE)(TABLETS) [Concomitant]
  4. EUROBIOL (PANCREATIN) (CAPSULES) [Concomitant]
  5. RENITEC (ENALAPRIL) (TABLETS) [Concomitant]

REACTIONS (6)
  - CONSTIPATION [None]
  - DEPRESSION [None]
  - PROSTATIC SPECIFIC ANTIGEN INCREASED [None]
  - RETINAL HAEMORRHAGE [None]
  - RETINAL VASCULAR THROMBOSIS [None]
  - VISUAL ACUITY REDUCED [None]
